FAERS Safety Report 8533583-0 (Version None)
Quarter: 2012Q3

REPORT INFORMATION
  Report Type: 
  Country: None (occurrence: None)
  Receive Date: 20120717
  Receipt Date: 20120717
  Transmission Date: 20120928
  Serious: No
  Sender: FDA-Public Use
  Company Number: None

PATIENT
  Age: 43 Year
  Sex: Female
  Weight: 79.8331 kg

DRUGS (2)
  1. LIDOCAINE [Suspect]
     Indication: VOMITING
     Dosage: 80 MG ONCE IV
     Route: 042
     Dates: start: 20120509, end: 20120509
  2. LIDOCAINE [Suspect]
     Indication: IRON DEFICIENCY ANAEMIA
     Dosage: 80 MG ONCE IV
     Route: 042
     Dates: start: 20120509, end: 20120509

REACTIONS (4)
  - BLOOD PRESSURE INCREASED [None]
  - ANAESTHETIC COMPLICATION [None]
  - VOMITING [None]
  - CONVULSION [None]
